FAERS Safety Report 16347666 (Version 1)
Quarter: 2019Q2

REPORT INFORMATION
  Report Type: Spontaneous
  Country: US (occurrence: US)
  Receive Date: 20190523
  Receipt Date: 20190523
  Transmission Date: 20190711
  Serious: No
  Sender: FDA-Public Use
  Company Number: US-009507513-1905USA009761

PATIENT
  Age: 61 Year
  Sex: Male

DRUGS (3)
  1. REMERON [Suspect]
     Active Substance: MIRTAZAPINE
     Dosage: UNK
     Route: 048
  2. PHENOXYBENZAMINE HYDROCHLORIDE. [Concomitant]
     Active Substance: PHENOXYBENZAMINE HYDROCHLORIDE
     Dosage: UNK
  3. IOBENGUANE I 123 [Suspect]
     Active Substance: IOBENGUANE I-123
     Dosage: 314.5 MEGABECQUERELS
     Route: 042

REACTIONS (2)
  - Drug interaction [Unknown]
  - Therapeutic agent-diagnostic test interaction [Unknown]
